FAERS Safety Report 7971787-6 (Version None)
Quarter: 2011Q4

REPORT INFORMATION
  Report Type: 
  Country: None (occurrence: None)
  Receive Date: 20111122
  Receipt Date: 20110701
  Transmission Date: 20120403
  Serious: No
  Sender: FDA-Public Use
  Company Number: PHHY2011US52621

PATIENT
  Age: 61 Year
  Sex: Female
  Weight: 46 kg

DRUGS (9)
  1. DAYPRO [Concomitant]
  2. IBUPROFEN [Concomitant]
  3. LORAZEPAM [Concomitant]
  4. CELEBREX [Concomitant]
  5. EFFEXOR [Concomitant]
  6. ARTHROTEC [Concomitant]
  7. CODEINE SULFATE [Concomitant]
  8. GILENYA [Suspect]
     Indication: MULTIPLE SCLEROSIS
     Dosage: ONCE DAILY, ORAL
     Route: 048
     Dates: start: 20110330
  9. BEXTRA [Concomitant]

REACTIONS (2)
  - AMNESIA [None]
  - FATIGUE [None]
